FAERS Safety Report 5306114-6 (Version None)
Quarter: 2007Q2

REPORT INFORMATION
  Report Type: 
  Country: None (occurrence: None)
  Receive Date: 20070424
  Receipt Date: 20070205
  Transmission Date: 20071010
  Serious: No
  Sender: FDA-Public Use
  Company Number: US-BRISTOL-MYERS SQUIBB COMPANY-13669254

PATIENT
  Sex: Female
  Weight: 67 kg

DRUGS (10)
  1. CARBOPLATIN [Suspect]
  2. DECADRON [Concomitant]
  3. ELAVIL [Concomitant]
  4. VITAMIN CAP [Concomitant]
  5. LUNESTA [Concomitant]
  6. NEULASTA [Concomitant]
  7. LEVOXYL [Concomitant]
  8. ARANESP [Concomitant]
  9. MIRALAX [Concomitant]
  10. AVASTIN [Concomitant]

REACTIONS (2)
  - DYSPNOEA [None]
  - ERYTHEMA [None]
